FAERS Safety Report 20653629 (Version 1)
Quarter: 2022Q1

REPORT INFORMATION
  Report Type: Spontaneous
  Country: US (occurrence: US)
  Receive Date: 20220330
  Receipt Date: 20220330
  Transmission Date: 20220423
  Serious: No
  Sender: FDA-Public Use
  Company Number: US-SA-SAC20220323000198

PATIENT
  Age: 57 Year
  Sex: Female

DRUGS (16)
  1. DUPIXENT [Suspect]
     Active Substance: DUPILUMAB
     Indication: Asthma
     Dosage: 300 MG, QOW
     Route: 058
  2. MYCOPHENOLATE MOFETIL [Concomitant]
     Active Substance: MYCOPHENOLATE MOFETIL
  3. ACETAMINOPHEN [Concomitant]
     Active Substance: ACETAMINOPHEN
  4. ALBUTEROL SULFATE [Concomitant]
     Active Substance: ALBUTEROL SULFATE
  5. BUDESONIDE [Concomitant]
     Active Substance: BUDESONIDE
  6. BUPROPION HYDROCHLORIDE [Concomitant]
     Active Substance: BUPROPION HYDROCHLORIDE
  7. CEFDINIR [Concomitant]
     Active Substance: CEFDINIR
  8. COLCHICINE [Concomitant]
     Active Substance: COLCHICINE
  9. DICLOFENAC [Concomitant]
     Active Substance: DICLOFENAC
  10. LEVOCETIRIZINE DIHYDROCHLORIDE [Concomitant]
     Active Substance: LEVOCETIRIZINE DIHYDROCHLORIDE
  11. NYSTATIN [Concomitant]
     Active Substance: NYSTATIN
  12. PROMETHAZINE [Concomitant]
     Active Substance: PROMETHAZINE HYDROCHLORIDE
  13. TIZANIDINE [Concomitant]
     Active Substance: TIZANIDINE
  14. VENTOLIN HFA [Concomitant]
     Active Substance: ALBUTEROL SULFATE
  15. HYDROCODONE [Concomitant]
     Active Substance: HYDROCODONE
  16. CHLORZOXAZONE [Concomitant]
     Active Substance: CHLORZOXAZONE

REACTIONS (2)
  - Malaise [Unknown]
  - Product use issue [Unknown]

NARRATIVE: CASE EVENT DATE: 20220321
